FAERS Safety Report 6668948-5 (Version None)
Quarter: 2010Q2

REPORT INFORMATION
  Report Type: 
  Country: None (occurrence: None)
  Receive Date: 20100406
  Receipt Date: 20100326
  Transmission Date: 20101027
  Serious: Yes (Hospitalization, Other)
  Sender: FDA-Public Use
  Company Number: FR-BAYER-201010691GPV

PATIENT
  Age: 38 Year
  Sex: Female
  Weight: 40 kg

DRUGS (1)
  1. MIRENA [Suspect]
     Indication: CONTRACEPTION
     Route: 015
     Dates: start: 20070101

REACTIONS (3)
  - ABDOMINAL PAIN [None]
  - PELVIC PAIN [None]
  - PELVIC VENOUS THROMBOSIS [None]
